FAERS Safety Report 8429233-4 (Version None)
Quarter: 2012Q2

REPORT INFORMATION
  Report Type: 
  Country: None (occurrence: None)
  Receive Date: 20120612
  Receipt Date: 20120605
  Transmission Date: 20120825
  Serious: Yes (Other)
  Sender: FDA-Public Use
  Company Number: PHHY2010CA24345

PATIENT
  Sex: Female
  Weight: 36.281 kg

DRUGS (5)
  1. SANDOSTATIN LAR [Suspect]
     Indication: SMALL INTESTINE CARCINOMA
     Dosage: 10 MG, QMO
     Route: 030
     Dates: start: 20100412
  2. SANDOSTATIN LAR [Suspect]
     Dosage: 5 MG, BIW
     Route: 030
  3. SANDOSTATIN LAR [Suspect]
     Dosage: 5 MG, QMO
     Route: 030
  4. SANDOSTATIN LAR [Suspect]
     Dosage: 10 MG, QMO
     Route: 030
     Dates: start: 20100705
  5. SANDOSTATIN LAR [Suspect]
     Dosage: 5 MG, EVERY FOUR WEEKS
     Route: 030

REACTIONS (16)
  - INJECTION SITE ERYTHEMA [None]
  - CHILLS [None]
  - VOMITING [None]
  - ABDOMINAL PAIN [None]
  - BLOOD PRESSURE SYSTOLIC INCREASED [None]
  - INJECTION SITE PAIN [None]
  - DIARRHOEA [None]
  - FALL [None]
  - CONTUSION [None]
  - PYREXIA [None]
  - DIZZINESS [None]
  - INJURY [None]
  - NAUSEA [None]
  - COUGH [None]
  - HAEMOPTYSIS [None]
  - DRUG INTOLERANCE [None]
